FAERS Safety Report 24223413 (Version 4)
Quarter: 2024Q4

REPORT INFORMATION
  Report Type: Spontaneous
  Country: US (occurrence: US)
  Receive Date: 20240819
  Receipt Date: 20241002
  Transmission Date: 20250115
  Serious: Yes (Other)
  Sender: NOVARTIS
  Company Number: US-002147023-NVSC2024US167145

PATIENT
  Sex: Male

DRUGS (2)
  1. KYMRIAH [Suspect]
     Active Substance: TISAGENLECLEUCEL
     Indication: B-cell type acute leukaemia
     Dosage: UNK, ONCE/SINGLE
     Route: 042
  2. KYMRIAH [Suspect]
     Active Substance: TISAGENLECLEUCEL
     Indication: Acute lymphocytic leukaemia recurrent

REACTIONS (3)
  - B-cell type acute leukaemia [Not Recovered/Not Resolved]
  - Acute lymphocytic leukaemia recurrent [Not Recovered/Not Resolved]
  - Central nervous system leukaemia [Recovered/Resolved]
